FAERS Safety Report 5743587-9 (Version None)
Quarter: 2008Q2

REPORT INFORMATION
  Report Type: 
  Country: None (occurrence: None)
  Receive Date: 20080520
  Receipt Date: 20080512
  Transmission Date: 20081010
  Serious: Yes (Death, Other)
  Sender: FDA-Public Use
  Company Number: PHHY2008IE07712

PATIENT

DRUGS (2)
  1. ZOMETA [Suspect]
     Indication: METASTASES TO BONE
  2. BISPHOSPHONATES [Concomitant]

REACTIONS (5)
  - DISEASE PROGRESSION [None]
  - HYPERCALCAEMIA [None]
  - METASTASES TO LIVER [None]
  - METASTASES TO LUNG [None]
  - OSTEONECROSIS [None]
